FAERS Safety Report 9063017 (Version 1)
Quarter: 2013Q1

REPORT INFORMATION
  Report Type: Report from Study
  Country: US (occurrence: US)
  Receive Date: 20130131
  Receipt Date: 20130131
  Transmission Date: 20140127
  Serious: No
  Sender: FDA-Public Use
  Company Number: US-ABBOTT-12P-163-0999049-00

PATIENT
  Age: 22 Year
  Sex: Male

DRUGS (11)
  1. HUMIRA [Suspect]
     Indication: CROHN^S DISEASE
     Route: 058
     Dates: start: 20120913
  2. ABILIFY [Concomitant]
     Indication: DEPRESSION
     Dosage: DAILY
  3. PAXIL [Concomitant]
     Indication: OBSESSIVE-COMPULSIVE DISORDER
     Dosage: DAILY
  4. PAXIL [Concomitant]
     Indication: DEPRESSION
  5. CONGENTIN [Concomitant]
     Indication: TREMOR
     Dosage: DAILY
  6. ZOFRAN [Concomitant]
     Indication: ABDOMINAL DISCOMFORT
  7. REGLAN [Concomitant]
     Indication: NAUSEA
  8. PHENERGAN [Concomitant]
     Indication: NAUSEA
  9. KLONOPIN [Concomitant]
     Indication: ANXIETY
  10. PERCOCET [Concomitant]
     Indication: PAIN
     Dosage: 5/325MG
  11. DILAUDID [Concomitant]
     Indication: PAIN

REACTIONS (4)
  - Injection site pain [Not Recovered/Not Resolved]
  - Injection site induration [Not Recovered/Not Resolved]
  - Injection site bruising [Recovering/Resolving]
  - Injection site pain [Recovering/Resolving]
